FAERS Safety Report 7641434-1 (Version None)
Quarter: 2011Q3

REPORT INFORMATION
  Report Type: 
  Country: None (occurrence: None)
  Receive Date: 20110728
  Receipt Date: 20110725
  Transmission Date: 20111222
  Serious: Yes (Congenital Anomaly, Other)
  Sender: FDA-Public Use
  Company Number: FR-ABBOTT-11P-056-0841403-00

PATIENT
  Sex: Male

DRUGS (8)
  1. RIMIFON [Suspect]
     Indication: MATERNAL EXPOSURE DURING PREGNANCY
     Route: 064
  2. VALGANCICLOVIR [Suspect]
     Indication: MATERNAL EXPOSURE DURING PREGNANCY
     Route: 064
  3. CLARITHROMYCIN [Suspect]
     Indication: MATERNAL EXPOSURE DURING PREGNANCY
     Route: 064
  4. RIFABUTIN [Suspect]
     Indication: MATERNAL EXPOSURE DURING PREGNANCY
     Route: 064
  5. BACTRIM [Suspect]
     Indication: MATERNAL EXPOSURE DURING PREGNANCY
     Route: 064
  6. MYAMBUTOL [Suspect]
     Indication: MATERNAL EXPOSURE DURING PREGNANCY
     Route: 064
  7. TRUVADA [Suspect]
     Indication: MATERNAL EXPOSURE DURING PREGNANCY
     Route: 064
  8. KALETRA [Suspect]
     Indication: MATERNAL EXPOSURE DURING PREGNANCY
     Route: 064

REACTIONS (15)
  - ATRIAL SEPTAL DEFECT [None]
  - CONGENITAL ENDOCRINE ANOMALY [None]
  - KIDNEY MALFORMATION [None]
  - HEART DISEASE CONGENITAL [None]
  - CHARGE SYNDROME [None]
  - VENTRICULAR SEPTAL DEFECT [None]
  - ECTOPIA CORDIS [None]
  - CONGENITAL AORTIC ATRESIA [None]
  - EAR MALFORMATION [None]
  - POLYDACTYLY [None]
  - AORTICOPULMONARY SEPTAL DEFECT [None]
  - MATERNAL EXPOSURE DURING PREGNANCY [None]
  - OESOPHAGEAL ATRESIA [None]
  - HYPOSPADIAS [None]
  - MICROTIA [None]
